FAERS Safety Report 16414512 (Version 1)
Quarter: 2019Q2

REPORT INFORMATION
  Report Type: Spontaneous
  Country: AR (occurrence: AR)
  Receive Date: 20190611
  Receipt Date: 20190611
  Transmission Date: 20190711
  Serious: Yes (Hospitalization)
  Sender: FDA-Public Use
  Company Number: AR-PFIZER INC-2019248863

PATIENT
  Age: 19 Month
  Sex: Female

DRUGS (1)
  1. IBUPIRAC [Suspect]
     Active Substance: IBUPROFEN

REACTIONS (1)
  - Gastrointestinal disorder [Unknown]
